FAERS Safety Report 7419550-9 (Version None)
Quarter: 2011Q1

REPORT INFORMATION
  Report Type: 
  Country: None (occurrence: None)
  Receive Date: 20110302
  Receipt Date: 20101105
  Transmission Date: 20110831
  Serious: No
  Sender: FDA-Public Use
  Company Number: 021619

PATIENT
  Sex: Female
  Weight: 63.5 kg

DRUGS (7)
  1. CIMZIA [Suspect]
     Indication: CROHN'S DISEASE
     Dosage: 400 MG 1X/2 WEEKS SUBCUTANEOUS
     Route: 058
     Dates: start: 20101018
  2. PRAVASTATIN [Concomitant]
  3. AMITRIPTYLINE [Concomitant]
  4. ELMIRON [Concomitant]
  5. LISINOPRIL [Concomitant]
  6. AZATHIOPRINE [Concomitant]
  7. SANCTURA [Concomitant]

REACTIONS (2)
  - INJECTION SITE ERYTHEMA [None]
  - INJECTION SITE MASS [None]
